FAERS Safety Report 11805693 (Version 2)
Quarter: 2016Q1

REPORT INFORMATION
  Report Type: Spontaneous
  Country: US (occurrence: US)
  Receive Date: 20151207
  Receipt Date: 20160121
  Transmission Date: 20160525
  Serious: Yes (Other)
  Sender: FDA-Public Use
  Company Number: US-009507513-1512USA001835

PATIENT
  Age: 52 Year
  Sex: Female

DRUGS (2)
  1. FORTEO [Concomitant]
     Active Substance: TERIPARATIDE
     Indication: OSTEOPOROSIS
     Dosage: UNK
  2. FOSAMAX [Suspect]
     Active Substance: ALENDRONATE SODIUM
     Indication: OSTEOPOROSIS
     Dosage: UNK

REACTIONS (11)
  - Bone loss [Unknown]
  - Weight decreased [Unknown]
  - Fibula fracture [Unknown]
  - Drug ineffective [Unknown]
  - Hip fracture [Unknown]
  - Multiple fractures [Unknown]
  - Tibia fracture [Unknown]
  - Scapula fracture [Recovered/Resolved]
  - Pelvic fracture [Unknown]
  - Femur fracture [Unknown]
  - Hip fracture [Unknown]

NARRATIVE: CASE EVENT DATE: 2000
